FAERS Safety Report 16595655 (Version 4)
Quarter: 2019Q3

REPORT INFORMATION
  Report Type: Report from Study
  Country: CN (occurrence: CN)
  Receive Date: 20190719
  Receipt Date: 20190927
  Transmission Date: 20191004
  Serious: Yes (Hospitalization)
  Sender: FDA-Public Use
  Company Number: CN-ROCHE-2318461

PATIENT
  Age: 35 Year
  Sex: Male
  Weight: 66 kg

DRUGS (3)
  1. BEVACIZUMAB. [Suspect]
     Active Substance: BEVACIZUMAB
     Indication: HEPATOCELLULAR CARCINOMA
     Dosage: DATE OF MOST RECENT PRIOR TO AE ONSET: 07/MAR/2019.?DATE OF MOST RECENT DOSE (1020 MG) PRIOR TO SAE
     Route: 042
     Dates: start: 20190307
  2. ATEZOLIZUMAB. [Suspect]
     Active Substance: ATEZOLIZUMAB
     Indication: HEPATOCELLULAR CARCINOMA
     Dosage: DATE OF MOST RECENT PRIOR TO AE ONSET: 07/MAR/2019?DATE OF MOST RECENT DOSE PRIOR TO SAE ONSET: 18/A
     Route: 042
     Dates: start: 20190307
  3. ENTECAVIR. [Concomitant]
     Active Substance: ENTECAVIR
     Route: 065
     Dates: start: 20180711

REACTIONS (1)
  - Hepatic function abnormal [Recovered/Resolved]

NARRATIVE: CASE EVENT DATE: 20190327
